FAERS Safety Report 17487495 (Version 1)
Quarter: 2020Q1

REPORT INFORMATION
  Report Type: Spontaneous
  Country: US (occurrence: US)
  Receive Date: 20200303
  Receipt Date: 20200303
  Transmission Date: 20200409
  Serious: No
  Sender: FDA-Public Use
  Company Number: US-JNJFOC-20200239122

PATIENT
  Sex: Female

DRUGS (1)
  1. SIMPONI [Suspect]
     Active Substance: GOLIMUMAB
     Indication: ANKYLOSING SPONDYLITIS
     Route: 058
     Dates: start: 201910

REACTIONS (6)
  - Constipation [Unknown]
  - Hypoaesthesia [Unknown]
  - Peripheral swelling [Unknown]
  - Pain [Unknown]
  - Arthralgia [Unknown]
  - Visual impairment [Unknown]
